FAERS Safety Report 8807614 (Version 3)
Quarter: 2012Q4

REPORT INFORMATION
  Report Type: 
  Country: JP (occurrence: JP)
  Receive Date: 20120925
  Receipt Date: 20121102
  Transmission Date: 20130627
  Serious: Yes (Other)
  Sender: FDA-Public Use
  Company Number: JP-PFIZER INC-2012219415

PATIENT
  Age: 80 Year
  Sex: Female

DRUGS (6)
  1. XALATAN [Suspect]
     Indication: GLAUCOMA
     Dosage: UNK, 1x/day in left eye
     Route: 047
     Dates: start: 20010315, end: 20120309
  2. XALATAN [Suspect]
     Dosage: UNK, 1x/day in right eye
     Route: 047
     Dates: start: 20010315
  3. TIMOPTOL [Suspect]
     Indication: GLAUCOMA
     Dosage: UNK, 2x/day in left eye
     Route: 047
     Dates: start: 20020220, end: 20120323
  4. TIMOPTOL [Suspect]
     Dosage: UNK, 2x/day in right eye
     Route: 047
     Dates: start: 20020220
  5. TRUSOPT [Suspect]
     Indication: GLAUCOMA
     Dosage: UNK, 3x/day in left eye
     Route: 047
     Dates: start: 20050421, end: 20120323
  6. TRUSOPT [Suspect]
     Dosage: UNK, 3x/day in right eye
     Route: 047
     Dates: start: 20050421

REACTIONS (2)
  - Choroidal detachment [Recovered/Resolved]
  - Intraocular pressure decreased [Recovered/Resolved]
